FAERS Safety Report 4828498-5 (Version None)
Quarter: 2005Q4

REPORT INFORMATION
  Report Type: 
  Country: None (occurrence: None)
  Receive Date: 20051110
  Receipt Date: 20051030
  Transmission Date: 20060501
  Serious: Yes (Death, Hospitalization)
  Sender: FDA-Public Use
  Company Number: 051102-0001082

PATIENT
  Age: 32 Year
  Sex: Male

DRUGS (1)
  1. METHAMPHETAMINE HCL (METHAMPHETAMINE HYDROCHLORIDE) [Suspect]

REACTIONS (6)
  - DRUG ABUSER [None]
  - ENDOCARDITIS [None]
  - FALL [None]
  - INTENTIONAL DRUG MISUSE [None]
  - RESUSCITATION [None]
  - SEPTIC SHOCK [None]
